FAERS Safety Report 7409579-9 (Version None)
Quarter: 2011Q2

REPORT INFORMATION
  Report Type: 
  Country: None (occurrence: None)
  Receive Date: 20110412
  Receipt Date: 20101217
  Transmission Date: 20111010
  Serious: Yes (Other)
  Sender: FDA-Public Use
  Company Number: US-BAYER-201033326NA

PATIENT
  Age: 18 Year
  Sex: Female
  Weight: 86 kg

DRUGS (9)
  1. IBUPROFEN [Concomitant]
     Indication: PRODUCT USED FOR UNKNOWN INDICATION
     Dosage: 800 MG, UNK
     Dates: start: 20050301
  2. NORA-BE [Concomitant]
     Indication: PRODUCT USED FOR UNKNOWN INDICATION
     Dosage: UNK
     Dates: start: 20050315
  3. PRENATE [FOLIC ACID,IRON,MINERALS NOS,VITAMINS NOS] [Concomitant]
     Indication: MEDICAL DIET
     Dosage: UNK UNK, QD
     Route: 048
     Dates: start: 20041022, end: 20051223
  4. VICODIN [Concomitant]
  5. NAPROXEN [Concomitant]
     Indication: PRODUCT USED FOR UNKNOWN INDICATION
     Dosage: 500 MG, UNK
     Dates: start: 20050301
  6. ALBUTEROL [Concomitant]
     Indication: ASTHMA
     Dosage: UNK
     Route: 055
     Dates: start: 20050708
  7. YASMIN [Suspect]
     Indication: CONTRACEPTION
     Dosage: UNK UNK, UNK
     Route: 048
     Dates: start: 20050501, end: 20051001
  8. YAZ [Suspect]
     Indication: PRODUCT USED FOR UNKNOWN INDICATION
     Dosage: UNK
     Dates: start: 20050501, end: 20051001
  9. HYDROCODONE BITARTRATE AND ACETAMINOPHEN [Concomitant]
     Indication: PRODUCT USED FOR UNKNOWN INDICATION

REACTIONS (6)
  - CHOLECYSTITIS [None]
  - NAUSEA [None]
  - BILIARY COLIC [None]
  - ABDOMINAL PAIN [None]
  - CHOLELITHIASIS [None]
  - VOMITING [None]
